FAERS Safety Report 7270122-9 (Version None)
Quarter: 2011Q1

REPORT INFORMATION
  Report Type: 
  Country: None (occurrence: None)
  Receive Date: 20110202
  Receipt Date: 20110126
  Transmission Date: 20110831
  Serious: Yes (Death, Other)
  Sender: FDA-Public Use
  Company Number: MX-ROCHE-756731

PATIENT
  Age: 29 Year
  Sex: Male

DRUGS (4)
  1. ZIDOVUDINE [Suspect]
     Dosage: ONGOING STATUS UNKNOWN AT THE TIME OF DEATH
     Route: 065
  2. SULFAMETHOXAZOLE AND TRIMETHOPRIM [Concomitant]
     Dosage: 160+800 MG EVERY DAY, ONGOING STATUS UNKNOWN AT THE TIME OF DEATH
     Route: 048
  3. DIDEOXYCYTIDINE [Suspect]
     Dosage: DRUG: DIDEOXYCITIDINE, ONGOING STATUS UNKNOWN AT THE TIME OF DEATH
     Route: 065
  4. SAQUINAVIR [Suspect]
     Dosage: ONGOING STATUS UNKNOWN AT THE TIME OF DEATH
     Route: 065

REACTIONS (2)
  - NON-HODGKIN'S LYMPHOMA [None]
  - DEEP VEIN THROMBOSIS [None]
